FAERS Safety Report 18182435 (Version 1)
Quarter: 2020Q3

REPORT INFORMATION
  Report Type: Spontaneous
  Country: NO (occurrence: NO)
  Receive Date: 20200821
  Receipt Date: 20200821
  Transmission Date: 20201103
  Serious: Yes (Hospitalization)
  Sender: FDA-Public Use
  Company Number: NO-MYLANLABS-2020M1072838

PATIENT
  Age: 61 Year
  Sex: Male

DRUGS (8)
  1. ZOLEDRONIC ACID [Suspect]
     Active Substance: ZOLEDRONIC ACID
     Indication: LUNG SQUAMOUS CELL CARCINOMA STAGE IV
     Dosage: THREE COURSES, MONTHLY
     Route: 065
  2. VINORELBINE [Suspect]
     Active Substance: VINORELBINE TARTRATE
     Indication: LUNG SQUAMOUS CELL CARCINOMA STAGE IV
     Dosage: THREE COURSES
     Route: 065
  3. PEMETREXED. [Suspect]
     Active Substance: PEMETREXED
     Indication: LUNG SQUAMOUS CELL CARCINOMA METASTATIC
  4. VINORELBINE [Suspect]
     Active Substance: VINORELBINE TARTRATE
     Indication: LUNG SQUAMOUS CELL CARCINOMA METASTATIC
  5. CARBOPLATIN. [Suspect]
     Active Substance: CARBOPLATIN
     Indication: LUNG SQUAMOUS CELL CARCINOMA STAGE IV
     Dosage: THREE COURSES
     Route: 065
  6. ZOLEDRONIC ACID [Suspect]
     Active Substance: ZOLEDRONIC ACID
     Indication: LUNG SQUAMOUS CELL CARCINOMA METASTATIC
  7. CARBOPLATIN. [Suspect]
     Active Substance: CARBOPLATIN
     Indication: LUNG SQUAMOUS CELL CARCINOMA METASTATIC
  8. PEMETREXED. [Suspect]
     Active Substance: PEMETREXED
     Indication: LUNG SQUAMOUS CELL CARCINOMA STAGE IV
     Route: 065

REACTIONS (4)
  - Abscess [Unknown]
  - Brain abscess [Unknown]
  - Pneumonia [Unknown]
  - Visual impairment [Unknown]
